FAERS Safety Report 21617433 (Version 1)
Quarter: 2022Q4

REPORT INFORMATION
  Report Type: Spontaneous
  Country: CN (occurrence: CN)
  Receive Date: 20221119
  Receipt Date: 20221119
  Transmission Date: 20230113
  Serious: Yes (Other)
  Sender: FDA-Public Use
  Company Number: None

PATIENT
  Age: 0 Year
  Sex: Male
  Weight: 11.5 kg

DRUGS (6)
  1. CYCLOPHOSPHAMIDE [Suspect]
     Active Substance: CYCLOPHOSPHAMIDE
     Indication: Malignant mediastinal neoplasm
     Dosage: 0.43 G, QD DILUTED WITH 250 ML OF GLUCOSE SODIUM CHLORIDE
     Route: 041
     Dates: start: 20221010, end: 20221010
  2. DEXTROSE\SODIUM CHLORIDE [Suspect]
     Active Substance: DEXTROSE\SODIUM CHLORIDE
     Indication: Medication dilution
     Dosage: 250ML USED TO DILUTE 0.43 G OF CYCLOPHOSPHAMIDE INJECTION
     Route: 041
     Dates: start: 20221010, end: 20221010
  3. SODIUM CHLORIDE [Suspect]
     Active Substance: SODIUM CHLORIDE
     Indication: Medication dilution
     Dosage: 250 ML USED TO DILUTE 0.057 G OF ETOPOSIDE INJECTION
     Route: 041
     Dates: start: 20221013, end: 20221013
  4. SODIUM CHLORIDE [Suspect]
     Active Substance: SODIUM CHLORIDE
     Dosage: 250 ML USED TO DILUTE 30 MG OF CISPLATIN INJECTION
     Route: 041
     Dates: start: 20221012, end: 20221012
  5. ETOPOSIDE [Suspect]
     Active Substance: ETOPOSIDE
     Indication: Malignant mediastinal neoplasm
     Dosage: 0.057 G, QD DILUTED WITH 250 ML OF 0.9% SODIUM CHLORIDE INJECTION
     Route: 041
     Dates: start: 20221013, end: 20221013
  6. CISPLATIN [Suspect]
     Active Substance: CISPLATIN
     Indication: Malignant mediastinal neoplasm
     Dosage: 30 MG, QD DILUTED WITH 250 ML OF 0.9% SODIUM CHLORIDE INJECTION
     Route: 041
     Dates: start: 20221012, end: 20221012

REACTIONS (1)
  - Myelosuppression [Recovering/Resolving]

NARRATIVE: CASE EVENT DATE: 20221013
